FAERS Safety Report 16461684 (Version 2)
Quarter: 2019Q3

REPORT INFORMATION
  Report Type: Spontaneous
  Country: NL (occurrence: NL)
  Receive Date: 20190621
  Receipt Date: 20190703
  Transmission Date: 20191004
  Serious: Yes (Death, Hospitalization)
  Sender: FDA-Public Use
  Company Number: NL-TEVA-2019-NL-1066767

PATIENT
  Age: 46 Year
  Sex: Male
  Weight: 80 kg

DRUGS (1)
  1. PAROXETINE TABLET, 30 MG (MILLIGRAM) [Suspect]
     Active Substance: PAROXETINE
     Indication: ANXIETY
     Dosage: 30 MG
     Dates: start: 20000101, end: 20180301

REACTIONS (2)
  - Partial seizures [Unknown]
  - Completed suicide [Fatal]

NARRATIVE: CASE EVENT DATE: 20180401
